FAERS Safety Report 15647086 (Version 1)
Quarter: 2018Q4

REPORT INFORMATION
  Report Type: Spontaneous
  Country: US (occurrence: US)
  Receive Date: 20181122
  Receipt Date: 20181122
  Transmission Date: 20190205
  Serious: Yes (Other)
  Sender: FDA-Public Use
  Company Number: US-BIOGEN-2018BI00662062

PATIENT
  Age: 44 Year
  Sex: Female

DRUGS (1)
  1. TYSABRI [Suspect]
     Active Substance: NATALIZUMAB
     Indication: MULTIPLE SCLEROSIS
     Route: 065

REACTIONS (10)
  - Primary progressive multiple sclerosis [Unknown]
  - Confusional state [Unknown]
  - Consciousness fluctuating [Unknown]
  - Temperature intolerance [Unknown]
  - Drug effect decreased [Unknown]
  - Muscular weakness [Unknown]
  - Pyrexia [Unknown]
  - Dyspnoea [Unknown]
  - Multiple sclerosis relapse [Unknown]
  - Urticaria [Unknown]
